FAERS Safety Report 11848292 (Version 1)
Quarter: 2015Q4

REPORT INFORMATION
  Report Type: Spontaneous
  Country: US (occurrence: US)
  Receive Date: 20151217
  Receipt Date: 20151217
  Transmission Date: 20160305
  Serious: Yes (Other)
  Sender: FDA-Public Use
  Company Number: US-ASTRAZENECA-2015SF26372

PATIENT
  Sex: Female
  Weight: 94.3 kg

DRUGS (7)
  1. METFORMIN [Concomitant]
     Active Substance: METFORMIN HYDROCHLORIDE
     Indication: DIABETES MELLITUS
     Dates: start: 2005
  2. GABAPENTIN. [Concomitant]
     Active Substance: GABAPENTIN
     Indication: NEUROPATHY PERIPHERAL
  3. LISINOPRIL. [Suspect]
     Active Substance: LISINOPRIL
     Indication: BLOOD PRESSURE ABNORMAL
     Route: 048
  4. LISINOPRIL. [Suspect]
     Active Substance: LISINOPRIL
     Indication: BLOOD PRESSURE ABNORMAL
     Route: 048
  5. SYNTHROID [Concomitant]
     Active Substance: LEVOTHYROXINE SODIUM
     Indication: THYROID DISORDER
     Dates: start: 2005
  6. CRESTOR [Suspect]
     Active Substance: ROSUVASTATIN CALCIUM
     Indication: PAIN IN EXTREMITY
     Route: 048
     Dates: start: 2010
  7. GLYBERIDE [Concomitant]
     Indication: DIABETES MELLITUS
     Dates: start: 2005

REACTIONS (11)
  - Blood triglycerides increased [Unknown]
  - Neoplasm malignant [Unknown]
  - Arterial rupture [Unknown]
  - Pain [Unknown]
  - Memory impairment [Unknown]
  - Pain in extremity [Unknown]
  - Arthritis [Unknown]
  - Body height decreased [Unknown]
  - Neuropathy peripheral [Unknown]
  - Drug dose omission [Unknown]
  - Gait disturbance [Unknown]
